FAERS Safety Report 6649204-8 (Version None)
Quarter: 2010Q1

REPORT INFORMATION
  Report Type: 
  Country: None (occurrence: None)
  Receive Date: 20100324
  Receipt Date: 20100317
  Transmission Date: 20100710
  Serious: Yes (Hospitalization)
  Sender: FDA-Public Use
  Company Number: B0642441A

PATIENT
  Sex: Male

DRUGS (4)
  1. AUGMENTIN [Suspect]
     Dosage: 10ML PER DAY
     Route: 048
     Dates: start: 20100301, end: 20100310
  2. CLENIL [Concomitant]
     Dosage: 2ML PER DAY
     Route: 065
     Dates: start: 20100310, end: 20100314
  3. BRONCOVALEAS [Concomitant]
     Route: 065
     Dates: start: 20100310, end: 20100314
  4. TINSET [Concomitant]
     Dosage: 8DROP PER DAY
     Route: 065
     Dates: start: 20100310, end: 20100315

REACTIONS (1)
  - HENOCH-SCHONLEIN PURPURA [None]
